FAERS Safety Report 7617890-1 (Version None)
Quarter: 2011Q3

REPORT INFORMATION
  Report Type: 
  Country: None (occurrence: None)
  Receive Date: 20110718
  Receipt Date: 20110712
  Transmission Date: 20111222
  Serious: Yes (Hospitalization)
  Sender: FDA-Public Use
  Company Number: US-SANOFI-AVENTIS-2011SA037794

PATIENT
  Age: 55 Year
  Sex: Male
  Weight: 81.82 kg

DRUGS (4)
  1. RANITIDINE [Concomitant]
     Dates: start: 20110501
  2. PLAVIX [Suspect]
     Indication: TRANSIENT ISCHAEMIC ATTACK
     Route: 065
     Dates: start: 20110502, end: 20110605
  3. SIMVASTATIN [Concomitant]
     Dates: start: 20110501
  4. OSTEO BI-FLEX [Concomitant]
     Indication: ARTHRITIS

REACTIONS (2)
  - TRANSIENT ISCHAEMIC ATTACK [None]
  - OFF LABEL USE [None]
